FAERS Safety Report 6550224-2 (Version None)
Quarter: 2010Q1

REPORT INFORMATION
  Report Type: 
  Country: None (occurrence: None)
  Receive Date: 20100125
  Receipt Date: 20100113
  Transmission Date: 20100710
  Serious: Yes (Other)
  Sender: FDA-Public Use
  Company Number: US-ELI_LILLY_AND_COMPANY-US201001003255

PATIENT
  Sex: Female

DRUGS (3)
  1. FORTEO [Suspect]
     Dates: start: 20090727, end: 20091220
  2. TOPROL-XL [Concomitant]
     Indication: HYPERTENSION
     Dosage: 50 MG, DAILY (1/D)
     Dates: start: 20050101
  3. HYZAAR [Concomitant]
     Indication: HYPERTENSION
     Dosage: 50/125, DAILY (1/D)
     Dates: start: 20060712

REACTIONS (3)
  - ABASIA [None]
  - ABDOMINAL DISTENSION [None]
  - CONFUSIONAL STATE [None]
